FAERS Safety Report 10216463 (Version 1)
Quarter: 2014Q2

REPORT INFORMATION
  Report Type: Spontaneous
  Country: US (occurrence: US)
  Receive Date: 20140604
  Receipt Date: 20140604
  Transmission Date: 20141212
  Serious: Yes (Other)
  Sender: FDA-Public Use
  Company Number: US-ACTAVIS-2014-11928

PATIENT
  Age: 62 Year
  Sex: Female

DRUGS (2)
  1. CARBOPLATIN (WATSON LABORATORIES) [Suspect]
     Indication: OVARIAN CANCER
     Dosage: 6 AREA UNDER THE CURVE
     Route: 065
     Dates: start: 201203
  2. PACLITAXEL [Concomitant]
     Indication: OVARIAN CANCER
     Dosage: 175 MG/M2, UNKNOWN
     Route: 065
     Dates: start: 201203

REACTIONS (2)
  - Drug hypersensitivity [Recovered/Resolved]
  - Palmar erythema [Recovered/Resolved]
